FAERS Safety Report 9093238 (Version 2)
Quarter: 2013Q3

REPORT INFORMATION
  Report Type: Report from Study
  Country: IL (occurrence: IL)
  Receive Date: 20130201
  Receipt Date: 20130917
  Transmission Date: 20140515
  Serious: Yes (Other)
  Sender: FDA-Public Use
  Company Number: IL-ROCHE-1182534

PATIENT
  Sex: 0

DRUGS (6)
  1. BEVACIZUMAB [Suspect]
     Indication: COLORECTAL CANCER METASTATIC
     Route: 042
  2. OXALIPLATIN [Suspect]
     Indication: COLORECTAL CANCER METASTATIC
     Dosage: ON DAY1
     Route: 065
  3. FOLINIC ACID [Suspect]
     Indication: COLORECTAL CANCER METASTATIC
     Route: 065
  4. FLUOROURACIL [Suspect]
     Indication: COLORECTAL CANCER METASTATIC
     Dosage: FOLFOX:OVER 4 MIN, FOLFIRI:BOLUS
     Route: 065
  5. FLUOROURACIL [Suspect]
     Dosage: FOLFOX:22-H INFUSION OF 600 MG/M2 ON DAYS 1 TO 2 EVERY 2 WEEKS, FOLFIRI:46-H INFUSION OF 1,200 MG/M2
     Route: 065
  6. IRINOTECAN [Suspect]
     Indication: COLORECTAL CANCER METASTATIC
     Dosage: FOR 1.5 H ON DAY 1
     Route: 065

REACTIONS (6)
  - Hepatic failure [Unknown]
  - Impaired healing [Unknown]
  - Infection [Unknown]
  - Embolism [Unknown]
  - Biliary tract disorder [Unknown]
  - Anastomotic leak [Unknown]
